FAERS Safety Report 8377540-6 (Version None)
Quarter: 2012Q2

REPORT INFORMATION
  Report Type: 
  Country: None (occurrence: None)
  Receive Date: 20120522
  Receipt Date: 20120515
  Transmission Date: 20120825
  Serious: Yes (Hospitalization)
  Sender: FDA-Public Use
  Company Number: DE-UCBSA-051344

PATIENT
  Age: 44 Year
  Sex: Female
  Weight: 72 kg

DRUGS (15)
  1. CIMZIA [Suspect]
     Indication: RHEUMATOID ARTHRITIS
     Dosage: TOTAL NUMBER OF INJECTIONS RECEIVED PRIOR TO TB DIAGNOSIS 15
     Route: 058
     Dates: start: 20111123, end: 20120125
  2. PANTOPRAZOLE [Concomitant]
     Indication: PROPHYLAXIS
     Dosage: 10 MG QS (QUANTITY SUFFICIENT)
     Dates: start: 20110627
  3. FOLIC ACID [Concomitant]
     Dosage: 5 MG QS
     Dates: start: 20110728, end: 20110101
  4. LEVOTHYROXINE SODIUM [Concomitant]
     Indication: HYPERTHYROIDISM
     Dates: start: 20050101
  5. FOLIC ACID [Concomitant]
     Dosage: 5 MG QS
     Dates: start: 20110205, end: 20110707
  6. PREDNISONE TAB [Concomitant]
     Indication: RHEUMATOID ARTHRITIS
     Dates: start: 20110301
  7. METHOTREXATE SODIUM [Concomitant]
     Dosage: 7.5 MG QS
     Dates: start: 20110727, end: 20111026
  8. CIMZIA [Suspect]
     Dosage: FROM 27-JUL-2011 TO 26-OCT-2011, PT HERSELF ADMINISTERED CIMZIA S.C EVERY 7 DAYS, LACK OF COMPLIANCE
     Route: 058
     Dates: start: 20110621, end: 20111109
  9. PREDNISONE TAB [Concomitant]
     Dosage: TOTAL DAILY DOSE 7.5 MG
     Dates: start: 20110121
  10. PANTOPRAZOLE [Concomitant]
  11. FOLIC ACID [Concomitant]
     Indication: RHEUMATOID ARTHRITIS
     Dates: start: 20111027, end: 20120101
  12. IBUPROFEN [Concomitant]
     Indication: RHEUMATOID ARTHRITIS
     Dates: start: 20111026
  13. CALCIUM D3 [Concomitant]
     Indication: OSTEOPOROSIS PROPHYLAXIS
     Dates: start: 20110308
  14. METHOTREXATE SODIUM [Concomitant]
     Indication: RHEUMATOID ARTHRITIS
     Dosage: 10 MG QS
     Dates: start: 20111123, end: 20120101
  15. METHOTREXATE SODIUM [Concomitant]
     Dosage: 10 MG QS
     Dates: start: 20111026, end: 20111114

REACTIONS (1)
  - TUBERCULOSIS [None]
